FAERS Safety Report 6234525-3 (Version None)
Quarter: 2009Q2

REPORT INFORMATION
  Report Type: 
  Country: None (occurrence: None)
  Receive Date: 20090615
  Receipt Date: 20090601
  Transmission Date: 20091009
  Serious: Yes (Other)
  Sender: FDA-Public Use
  Company Number: 2009S1008803

PATIENT
  Age: 36 Year
  Sex: Male

DRUGS (2)
  1. IBUPROFEN [Suspect]
     Indication: TOOTHACHE
  2. LITHIUM CARBONATE [Suspect]
     Indication: BIPOLAR II DISORDER
     Dosage: 800 MG; AT BEDTIME;

REACTIONS (7)
  - ANTIPSYCHOTIC DRUG LEVEL INCREASED [None]
  - DRUG CLEARANCE DECREASED [None]
  - DRUG INTERACTION [None]
  - POLYDIPSIA [None]
  - POLYURIA [None]
  - TOOTHACHE [None]
  - TREMOR [None]
